FAERS Safety Report 8056501-0 (Version None)
Quarter: 2012Q1

REPORT INFORMATION
  Report Type: 
  Country: None (occurrence: None)
  Receive Date: 20120119
  Receipt Date: 20110927
  Transmission Date: 20120608
  Serious: Yes (Hospitalization)
  Sender: FDA-Public Use
  Company Number: US-SANOFI-AVENTIS-2011SA051214

PATIENT
  Age: 81 Year
  Sex: Male

DRUGS (16)
  1. LASIX [Suspect]
     Route: 065
     Dates: end: 20110625
  2. BLINDED THERAPY [Suspect]
     Route: 065
     Dates: start: 20110727
  3. INSULIN DETEMIR [Suspect]
     Indication: TYPE 2 DIABETES MELLITUS
     Dosage: DOSE:20 UNIT(S)
     Route: 065
     Dates: start: 20101213
  4. INSULIN ASPART [Concomitant]
     Route: 065
     Dates: start: 20110818
  5. CHOLESTEROL- AND TRIGLYCERIDE REDUCERS [Concomitant]
  6. METFORMIN HYDROCHLORIDE [Suspect]
     Indication: TYPE 2 DIABETES MELLITUS
     Route: 065
     Dates: end: 20110525
  7. ALPHA-ADRENOCEPTOR BLOCKING AGENTS [Concomitant]
  8. ACE INHIBITOR NOS [Concomitant]
  9. INSULIN ASPART [Concomitant]
     Route: 065
     Dates: start: 20110818
  10. SOTALOL HCL [Suspect]
     Dates: end: 20110623
  11. BLINDED THERAPY [Suspect]
     Indication: TYPE 2 DIABETES MELLITUS
     Route: 065
     Dates: start: 20100907, end: 20110623
  12. DIURETICS [Concomitant]
  13. ANTIHYPERTENSIVES [Concomitant]
  14. METFORMIN HYDROCHLORIDE [Suspect]
     Route: 065
     Dates: start: 20110526, end: 20110701
  15. INSULIN DETEMIR [Suspect]
     Route: 065
     Dates: start: 20110427, end: 20110810
  16. ANTITHROMBOTIC AGENTS [Concomitant]
     Route: 048

REACTIONS (4)
  - CONDITION AGGRAVATED [None]
  - DYSPNOEA [None]
  - RENAL FAILURE ACUTE [None]
  - CONGESTIVE CARDIOMYOPATHY [None]
